FAERS Safety Report 20513996 (Version 4)
Quarter: 2022Q2

REPORT INFORMATION
  Report Type: Spontaneous
  Country: US (occurrence: US)
  Receive Date: 20220224
  Receipt Date: 20220415
  Transmission Date: 20220721
  Serious: No
  Sender: FDA-Public Use
  Company Number: US-BAYER-2022A024957

PATIENT
  Age: 27 Year
  Sex: Female

DRUGS (1)
  1. NATAZIA [Suspect]
     Active Substance: DIENOGEST\ESTRADIOL VALERATE
     Indication: Menstrual cycle management
     Dosage: UNK

REACTIONS (7)
  - Vulvovaginal rash [Not Recovered/Not Resolved]
  - Pain [Not Recovered/Not Resolved]
  - Erythema [Not Recovered/Not Resolved]
  - Irritability [Not Recovered/Not Resolved]
  - Suspected counterfeit product [None]
  - Skin lesion [None]
  - Burning sensation [None]

NARRATIVE: CASE EVENT DATE: 20211031
